FAERS Safety Report 8160846-3 (Version None)
Quarter: 2012Q1

REPORT INFORMATION
  Report Type: 
  Country: None (occurrence: None)
  Receive Date: 20120223
  Receipt Date: 20120220
  Transmission Date: 20120608
  Serious: Yes (Death, Hospitalization)
  Sender: FDA-Public Use
  Company Number: PHHY2012JP015019

PATIENT
  Age: 73 Year
  Sex: Male

DRUGS (2)
  1. CYCLOSPORINE [Suspect]
     Indication: MYELODYSPLASTIC SYNDROME
     Dosage: 200 MG, DAILY
     Dates: start: 20090101, end: 20100101
  2. PREDNISOLONE [Concomitant]
     Indication: MYELODYSPLASTIC SYNDROME
     Dosage: 5 MG,DAILY
     Route: 048
     Dates: start: 20090101

REACTIONS (3)
  - RESPIRATORY FAILURE [None]
  - ANGIOSARCOMA [None]
  - METASTASES TO LUNG [None]
